FAERS Safety Report 14498502 (Version 1)
Quarter: 2018Q1

REPORT INFORMATION
  Report Type: Spontaneous
  Country: US (occurrence: US)
  Receive Date: 20180207
  Receipt Date: 20180207
  Transmission Date: 20180509
  Serious: No
  Sender: FDA-Public Use
  Company Number: US-ELI_LILLY_AND_COMPANY-US201801005893

PATIENT
  Sex: Male

DRUGS (1)
  1. HUMATROPE [Suspect]
     Active Substance: SOMATROPIN
     Indication: GROWTH HORMONE DEFICIENCY
     Dosage: 24 MG, UNKNOWN
     Route: 058
     Dates: start: 2016

REACTIONS (3)
  - Fatigue [Not Recovered/Not Resolved]
  - Lipoma [Recovered/Resolved]
  - Sleep apnoea syndrome [Not Recovered/Not Resolved]
